FAERS Safety Report 10065144 (Version 2)
Quarter: 2014Q2

REPORT INFORMATION
  Report Type: Spontaneous
  Country: US (occurrence: US)
  Receive Date: 20140408
  Receipt Date: 20140408
  Transmission Date: 20141212
  Serious: Yes (Life-Threatening, Hospitalization)
  Sender: FDA-Public Use
  Company Number: US-CELGENEUS-163-POMAL-14030965

PATIENT
  Age: 64 Year
  Sex: Male
  Weight: 81.72 kg

DRUGS (10)
  1. POMALYST [Suspect]
     Indication: PLASMA CELL MYELOMA
     Dosage: 4 MILLIGRAM
     Route: 048
     Dates: start: 20130405
  2. DECADRON [Concomitant]
     Indication: PLASMA CELL MYELOMA
     Route: 065
     Dates: start: 201304
  3. VIT D [Concomitant]
     Indication: PLASMA CELL MYELOMA
     Route: 065
  4. COLACE [Concomitant]
     Indication: PLASMA CELL MYELOMA
     Dosage: 1-2 TABS
     Route: 065
  5. CARBAMAZEPINE [Concomitant]
     Indication: PLASMA CELL MYELOMA
     Dosage: 200 MILLIGRAM
     Route: 065
  6. OMEPRAZOLE [Concomitant]
     Indication: PLASMA CELL MYELOMA
     Dosage: 20 MILLIGRAM
     Route: 065
  7. PAROXETINE [Concomitant]
     Indication: PLASMA CELL MYELOMA
     Dosage: 1/2 TAB
     Route: 065
  8. SENNA LAX [Concomitant]
     Indication: PLASMA CELL MYELOMA
     Dosage: 8.6 MILLIGRAM
     Route: 065
  9. BACLOFEN [Concomitant]
     Indication: PLASMA CELL MYELOMA
     Dosage: 80 MILLIGRAM
     Route: 065
  10. SIMVASTATIN [Concomitant]
     Indication: PLASMA CELL MYELOMA
     Dosage: 40 MILLIGRAM
     Route: 065

REACTIONS (3)
  - Endocarditis staphylococcal [Not Recovered/Not Resolved]
  - Abscess [Not Recovered/Not Resolved]
  - Staphylococcal sepsis [Not Recovered/Not Resolved]
